FAERS Safety Report 13175427 (Version 3)
Quarter: 2017Q1

REPORT INFORMATION
  Report Type: Spontaneous
  Country: BR (occurrence: BR)
  Receive Date: 20170201
  Receipt Date: 20170322
  Transmission Date: 20170428
  Serious: Yes (Other)
  Sender: FDA-Public Use
  Company Number: BR-PFIZER INC-2017006812

PATIENT
  Age: 59 Year
  Sex: Male

DRUGS (2)
  1. SUTENT [Suspect]
     Active Substance: SUNITINIB MALATE
     Dosage: UNK
  2. SUTENT [Suspect]
     Active Substance: SUNITINIB MALATE
     Dosage: UNK
     Dates: start: 20170102, end: 201701

REACTIONS (11)
  - Vomiting [Not Recovered/Not Resolved]
  - Finger deformity [Unknown]
  - Aphthous ulcer [Unknown]
  - Eating disorder [Unknown]
  - Skin disorder [Unknown]
  - Poisoning [Recovered/Resolved]
  - Headache [Not Recovered/Not Resolved]
  - Yellow skin [Unknown]
  - Chromaturia [Not Recovered/Not Resolved]
  - Acne [Unknown]
  - Retching [Unknown]

NARRATIVE: CASE EVENT DATE: 201701
